FAERS Safety Report 10081145 (Version 1)
Quarter: 2014Q2

REPORT INFORMATION
  Report Type: Spontaneous
  Country: US (occurrence: US)
  Receive Date: 20140416
  Receipt Date: 20140416
  Transmission Date: 20141212
  Serious: Yes (Other)
  Sender: FDA-Public Use
  Company Number: US-009507513-1404USA006530

PATIENT
  Age: 35 Year
  Sex: Female
  Weight: 62.5 kg

DRUGS (2)
  1. NEXPLANON [Suspect]
     Indication: CONTRACEPTION
     Dosage: 1 ROD, UNK
     Route: 059
     Dates: start: 20140404
  2. ALLEGRA [Concomitant]

REACTIONS (2)
  - Convulsion [Recovering/Resolving]
  - Dizziness [Recovering/Resolving]
